FAERS Safety Report 7169951-1 (Version None)
Quarter: 2010Q4

REPORT INFORMATION
  Report Type: 
  Country: None (occurrence: None)
  Receive Date: 20101217
  Receipt Date: 20101214
  Transmission Date: 20110411
  Serious: Yes (Hospitalization, Other)
  Sender: FDA-Public Use
  Company Number: DE-BRISTOL-MYERS SQUIBB COMPANY-14688204

PATIENT
  Age: 65 Year
  Sex: Female
  Weight: 92 kg

DRUGS (3)
  1. CISPLATIN [Suspect]
     Indication: GASTROOESOPHAGEAL CANCER
     Dosage: DAY 1 OF CYCLE
     Route: 042
     Dates: start: 20090402, end: 20090617
  2. CETUXIMAB [Suspect]
     Indication: GASTROOESOPHAGEAL CANCER
     Route: 042
     Dates: start: 20090401, end: 20090617
  3. CAPECITABINE [Suspect]
     Indication: GASTROOESOPHAGEAL CANCER
     Dosage: ON DAY 1-15
     Route: 048
     Dates: start: 20090401, end: 20090621

REACTIONS (4)
  - DECREASED APPETITE [None]
  - DEHYDRATION [None]
  - DIZZINESS [None]
  - SYNCOPE [None]
